FAERS Safety Report 9642646 (Version 2)
Quarter: 2013Q4

REPORT INFORMATION
  Report Type: Spontaneous
  Country: US (occurrence: US)
  Receive Date: 20131024
  Receipt Date: 20131024
  Transmission Date: 20140711
  Serious: No
  Sender: FDA-Public Use
  Company Number: US-PFIZER INC-2013293540

PATIENT
  Age: 58 Year
  Sex: Male
  Weight: 91.61 kg

DRUGS (2)
  1. LYRICA [Suspect]
     Indication: BURNING SENSATION
     Dosage: 150 MG, 3X/DAY
     Route: 048
     Dates: start: 2012
  2. LYRICA [Suspect]
     Indication: PAIN

REACTIONS (1)
  - No adverse event [Unknown]
